FAERS Safety Report 16070409 (Version 1)
Quarter: 2019Q1

REPORT INFORMATION
  Report Type: Spontaneous
  Country: US (occurrence: US)
  Receive Date: 20190314
  Receipt Date: 20190314
  Transmission Date: 20190418
  Serious: No
  Sender: FDA-Public Use
  Company Number: US-TEVA-2019-US-1013419

PATIENT
  Sex: Female

DRUGS (2)
  1. CLONAZEPAM ACTAVIS [Suspect]
     Active Substance: CLONAZEPAM
     Indication: SLEEP DISORDER
     Route: 065
  2. CLONAZEPAM ACTAVIS [Suspect]
     Active Substance: CLONAZEPAM
     Indication: ANXIETY

REACTIONS (4)
  - Product use in unapproved indication [Unknown]
  - Product prescribing error [Unknown]
  - Drug ineffective [Unknown]
  - Product substitution issue [Unknown]
